FAERS Safety Report 4897529-9 (Version None)
Quarter: 2005Q4

REPORT INFORMATION
  Report Type: 
  Country: None (occurrence: None)
  Receive Date: 20051223
  Receipt Date: 20050912
  Transmission Date: 20060501
  Serious: No
  Sender: FDA-Public Use
  Company Number: 05P-163-0310755-00

PATIENT
  Age: 72 Year
  Sex: Female
  Weight: 81.6475 kg

DRUGS (12)
  1. HUMIRA [Suspect]
     Indication: RHEUMATOID ARTHRITIS
     Dosage: 40 MG, 1 IN 2 WK, SUBCUTANEOUS
     Route: 058
     Dates: start: 20050802
  2. COUMADIN [Concomitant]
  3. METHOTREXATE [Concomitant]
  4. LISINOPRIL [Concomitant]
  5. DOXEPIN [Concomitant]
  6. FUROSEMIDE [Concomitant]
  7. DIGOXIN [Concomitant]
  8. GEMFIBROZIL [Concomitant]
  9. ATORVASTATIN CALCIUM [Concomitant]
  10. METOPROLOL [Concomitant]
  11. FOLIC ACID [Concomitant]
  12. TRAMADOL HCL [Concomitant]

REACTIONS (2)
  - DRUG INEFFECTIVE [None]
  - PAIN [None]
